FAERS Safety Report 11269977 (Version 1)
Quarter: 2015Q3

REPORT INFORMATION
  Report Type: Spontaneous
  Country: GB (occurrence: GB)
  Receive Date: 20150714
  Receipt Date: 20150714
  Transmission Date: 20151125
  Serious: Yes (Other)
  Sender: FDA-Public Use
  Company Number: GB-PFIZER INC-2015226812

PATIENT
  Age: 56 Year
  Sex: Male

DRUGS (3)
  1. LYRICA [Suspect]
     Active Substance: PREGABALIN
     Indication: HEADACHE
     Dosage: 75 MG, UNK
  2. LYRICA [Suspect]
     Active Substance: PREGABALIN
     Dosage: TITRATED UP TO 600 MG
  3. LYRICA [Suspect]
     Active Substance: PREGABALIN
     Dosage: 600 MG, UNK
     Dates: end: 201501

REACTIONS (14)
  - Insomnia [Unknown]
  - Drug ineffective for unapproved indication [Unknown]
  - Urinary retention [Unknown]
  - Suicidal ideation [Unknown]
  - Drug withdrawal syndrome [Unknown]
  - Fear [Unknown]
  - Depression [Unknown]
  - Paraesthesia [Unknown]
  - Muscle twitching [Unknown]
  - Panic attack [Unknown]
  - Condition aggravated [Unknown]
  - Cardiac disorder [Unknown]
  - Anxiety [Unknown]
  - Tremor [Unknown]
